FAERS Safety Report 4661097-7 (Version None)
Quarter: 2005Q2

REPORT INFORMATION
  Report Type: 
  Country: None (occurrence: None)
  Receive Date: 20050511
  Receipt Date: 20050428
  Transmission Date: 20051028
  Serious: Yes (Death)
  Sender: FDA-Public Use
  Company Number: 2005062699

PATIENT
  Age: 69 Year
  Sex: Male

DRUGS (4)
  1. ZYVOX [Suspect]
     Indication: SEPSIS
     Dosage: 1200 MG, INTRAVENOUS
     Route: 042
     Dates: start: 20050418
  2. ARBEKACIN (ARBEKACIN) [Concomitant]
  3. TEICOPLANIN                            (TEICOPLANIN) [Concomitant]
  4. IMMUNOGLOBULIN HUMAN NORMAL                  (IMMUNOGLOBULIN HUMAN) [Concomitant]

REACTIONS (1)
  - DISEASE PROGRESSION [None]
